FAERS Safety Report 19913521 (Version 1)
Quarter: 2021Q4

REPORT INFORMATION
  Report Type: Spontaneous
  Country: IL (occurrence: IL)
  Receive Date: 20211004
  Receipt Date: 20211004
  Transmission Date: 20220304
  Serious: Yes (Hospitalization)
  Sender: FDA-Public Use
  Company Number: IL-LUNDBECK-DKLU3038923

PATIENT
  Age: 19 Year
  Sex: Male

DRUGS (2)
  1. BRINTELLIX [Suspect]
     Active Substance: VORTIOXETINE HYDROBROMIDE
     Indication: Schizophrenia
     Dosage: 10 MILLIGRAM
     Route: 065
  2. REXULTI [Suspect]
     Active Substance: BREXPIPRAZOLE
     Indication: Schizophrenia
     Dosage: 3 MILLIGRAM
     Route: 065

REACTIONS (3)
  - Musculoskeletal stiffness [Unknown]
  - Blood creatine phosphokinase increased [Unknown]
  - Product use in unapproved indication [Unknown]
